APPROVED DRUG PRODUCT: COTRIM
Active Ingredient: SULFAMETHOXAZOLE; TRIMETHOPRIM
Strength: 400MG;80MG
Dosage Form/Route: TABLET;ORAL
Application: A070034 | Product #001
Applicant: TEVA PHARMACEUTICALS USA INC
Approved: May 16, 1985 | RLD: No | RS: No | Type: DISCN